FAERS Safety Report 13574798 (Version 1)
Quarter: 2017Q2

REPORT INFORMATION
  Report Type: Spontaneous
  Country: US (occurrence: US)
  Receive Date: 20170523
  Receipt Date: 20170523
  Transmission Date: 20170830
  Serious: Yes (Other)
  Sender: FDA-Public Use
  Company Number: US-009507513-1705USA009744

PATIENT
  Age: 85 Year
  Sex: Female
  Weight: 61.22 kg

DRUGS (1)
  1. KEYTRUDA [Suspect]
     Active Substance: PEMBROLIZUMAB
     Indication: HEPATIC CANCER
     Dosage: UNK
     Route: 042
     Dates: start: 20170515

REACTIONS (6)
  - Lung neoplasm malignant [Unknown]
  - Pruritus [Unknown]
  - Product use in unapproved indication [Unknown]
  - Hepatic pain [Unknown]
  - Painful respiration [Unknown]
  - Vomiting [Unknown]

NARRATIVE: CASE EVENT DATE: 201705
